FAERS Safety Report 9804664 (Version 1)
Quarter: 2014Q1

REPORT INFORMATION
  Report Type: Spontaneous
  Country: US (occurrence: US)
  Receive Date: 20140108
  Receipt Date: 20140108
  Transmission Date: 20141002
  Serious: Yes (Other)
  Sender: FDA-Public Use
  Company Number: CHPA2014US000510

PATIENT
  Sex: 0

DRUGS (2)
  1. BUCKLEY^S COUGH MIXTURE [Suspect]
     Indication: COUGH
     Dosage: UNK
     Route: 048
  2. BUCKLEY^S COUGH MIXTURE [Suspect]
     Indication: OFF LABEL USE

REACTIONS (1)
  - Drug dependence [Not Recovered/Not Resolved]
